FAERS Safety Report 8825742 (Version 5)
Quarter: 2012Q4

REPORT INFORMATION
  Report Type: 
  Country: US (occurrence: US)
  Receive Date: 20121004
  Receipt Date: 20121107
  Transmission Date: 20130627
  Serious: No
  Sender: FDA-Public Use
  Company Number: US-ASTRAZENECA-2012SE72920

PATIENT
  Age: 37 Year
  Sex: Male

DRUGS (4)
  1. SYMBICORT PMDI [Suspect]
     Indication: ASTHMA
     Dosage: 160/4.5 MCG, BID
     Route: 055
  2. SYMBICORT PMDI [Suspect]
     Indication: ASTHMA
     Dosage: 160/4.5 MCG ONE DOSE IN 24 HOURS
     Route: 055
  3. ANTI-HISTAMINES [Concomitant]
  4. STEROIDS [Concomitant]
     Route: 048

REACTIONS (5)
  - Activities of daily living impaired [Unknown]
  - Performance status decreased [Unknown]
  - Asthma [Unknown]
  - Intentional drug misuse [Unknown]
  - Insomnia [Unknown]
